FAERS Safety Report 5373772-X (Version None)
Quarter: 2007Q2

REPORT INFORMATION
  Report Type: 
  Country: None (occurrence: None)
  Receive Date: 20070628
  Receipt Date: 20070619
  Transmission Date: 20071010
  Serious: Yes (Death, Other)
  Sender: FDA-Public Use
  Company Number: GB-AMGEN-US231253

PATIENT
  Age: 57 Year
  Sex: Female
  Weight: 65 kg

DRUGS (6)
  1. ENBREL [Suspect]
     Indication: RHEUMATOID ARTHRITIS
     Route: 058
     Dates: start: 20060331, end: 20060522
  2. PRAVASTATIN [Concomitant]
     Dosage: UNKNOWN
  3. CITALOPRAM HYDROBROMIDE [Concomitant]
     Dosage: UNKNOWN
  4. MORPHINE SULFATE [Concomitant]
     Dosage: UNKNOWN
  5. BISOPROLOL FUMARATE [Concomitant]
     Dosage: UNKNOWN
  6. CANDESARTAN [Concomitant]
     Dosage: UNKNOWN

REACTIONS (4)
  - ABSCESS [None]
  - EMPYEMA [None]
  - MULTI-ORGAN FAILURE [None]
  - SEPSIS [None]
